FAERS Safety Report 4415037-6 (Version None)
Quarter: 2004Q3

REPORT INFORMATION
  Report Type: 
  Country: None (occurrence: None)
  Receive Date: 20040729
  Receipt Date: 20040713
  Transmission Date: 20050211
  Serious: Yes (Hospitalization)
  Sender: FDA-Public Use
  Company Number: 8006358

PATIENT
  Age: 71 Year
  Sex: Female
  Weight: 87.72 kg

DRUGS (23)
  1. LORTAB [Suspect]
     Indication: PAIN
     Dosage: ORAL
     Route: 048
     Dates: end: 20040101
  2. FENTANYL [Suspect]
     Indication: PAIN
     Dosage: D TRD
     Dates: start: 20031223, end: 20040113
  3. DARVOCET [Suspect]
     Indication: ARTHRITIS
     Dosage: 4/D PO
     Route: 048
     Dates: end: 20040101
  4. SYNTHROID [Concomitant]
  5. TAGAMET [Concomitant]
  6. DITROPAN [Concomitant]
  7. GLUCOPHAGE [Concomitant]
  8. PHENERGAN [Concomitant]
  9. NEURONTIN [Concomitant]
  10. ALBUTEROL [Concomitant]
  11. SEROQUEL [Concomitant]
  12. NOLVADEX [Concomitant]
  13. ATENOLOL [Concomitant]
  14. LASIX [Concomitant]
  15. CELEXA [Concomitant]
  16. KLOR-CON [Concomitant]
  17. LEKOVIT [Concomitant]
  18. MIACALCIN [Concomitant]
  19. DOVONEX [Concomitant]
  20. DIPROLENE [Concomitant]
  21. ATIVAN [Concomitant]
  22. ALBUTEROL SULFATE [Concomitant]
  23. SULFAMETHOXAZOLE [Concomitant]

REACTIONS (21)
  - ABDOMINAL DISTENSION [None]
  - BEDRIDDEN [None]
  - BRONCHITIS [None]
  - CONSTIPATION [None]
  - DRUG ABUSER [None]
  - DRUG ADDICT [None]
  - DRUG WITHDRAWAL SYNDROME [None]
  - FALL [None]
  - HAEMATOCRIT DECREASED [None]
  - HAEMOGLOBIN DECREASED [None]
  - HYPERVENTILATION [None]
  - MEDICATION ERROR [None]
  - MENTAL STATUS CHANGES [None]
  - OBESITY [None]
  - OXYGEN SATURATION DECREASED [None]
  - PHARMACEUTICAL PRODUCT COMPLAINT [None]
  - PUBIC RAMI FRACTURE [None]
  - REFUSAL OF TREATMENT BY PATIENT [None]
  - THROMBOCYTOPENIA [None]
  - VAGINAL MYCOSIS [None]
  - WALKING AID USER [None]
